FAERS Safety Report 7731444-8 (Version None)
Quarter: 2011Q3

REPORT INFORMATION
  Report Type: 
  Country: None (occurrence: None)
  Receive Date: 20110906
  Receipt Date: 20110602
  Transmission Date: 20111222
  Serious: No
  Sender: FDA-Public Use
  Company Number: US-AMGEN-USASP2011025670

PATIENT
  Age: 72 Year
  Sex: Female
  Weight: 46.712 kg

DRUGS (1)
  1. PROLIA [Suspect]
     Indication: OSTEOPOROSIS POSTMENOPAUSAL
     Dosage: 60 MG, Q6MO
     Dates: start: 20110425

REACTIONS (5)
  - CHILLS [None]
  - DYSURIA [None]
  - MYALGIA [None]
  - URINARY TRACT INFECTION [None]
  - PYREXIA [None]
